FAERS Safety Report 19611570 (Version 1)
Quarter: 2021Q3

REPORT INFORMATION
  Report Type: Spontaneous
  Country: CA (occurrence: CA)
  Receive Date: 20210727
  Receipt Date: 20210727
  Transmission Date: 20211014
  Serious: Yes (Death, Hospitalization)
  Sender: FDA-Public Use
  Company Number: CA-ALVOGEN-2021-ALVOGEN-117258

PATIENT
  Age: 71 Year
  Sex: Male

DRUGS (7)
  1. AMIODARONE [Interacting]
     Active Substance: AMIODARONE
     Indication: PRODUCT USED FOR UNKNOWN INDICATION
     Route: 065
  2. METOPROLOL. [Interacting]
     Active Substance: METOPROLOL
     Indication: PRODUCT USED FOR UNKNOWN INDICATION
     Dosage: 100.0 MILLIGRAM, 1 EVERY 2 DAYS
     Route: 065
  3. CILAZAPRIL [Interacting]
     Active Substance: CILAZAPRIL ANHYDROUS
     Indication: PRODUCT USED FOR UNKNOWN INDICATION
     Route: 065
  4. SOTALOL. [Interacting]
     Active Substance: SOTALOL
     Indication: PRODUCT USED FOR UNKNOWN INDICATION
     Route: 065
  5. DILTIAZEM. [Interacting]
     Active Substance: DILTIAZEM
     Indication: PRODUCT USED FOR UNKNOWN INDICATION
     Route: 065
  6. VERAPAMIL [Interacting]
     Active Substance: VERAPAMIL HYDROCHLORIDE
     Indication: PRODUCT USED FOR UNKNOWN INDICATION
     Dosage: EXTENDED RELEASE
     Route: 048
  7. ATENOLOL. [Suspect]
     Active Substance: ATENOLOL
     Indication: PRODUCT USED FOR UNKNOWN INDICATION
     Route: 065

REACTIONS (16)
  - Ejection fraction decreased [Fatal]
  - Fatigue [Fatal]
  - Toxicity to various agents [Fatal]
  - Drug interaction [Fatal]
  - Asthenia [Fatal]
  - Atrial fibrillation [Fatal]
  - Hypotension [Fatal]
  - Heart rate increased [Fatal]
  - Pacemaker generated rhythm [Fatal]
  - Heart rate abnormal [Fatal]
  - Antiacetylcholine receptor antibody positive [Fatal]
  - Cardiogenic shock [Fatal]
  - Dyspnoea [Fatal]
  - Blood potassium increased [Fatal]
  - Palpitations [Fatal]
  - Ventricular hypokinesia [Fatal]
